FAERS Safety Report 23708904 (Version 1)
Quarter: 2024Q2

REPORT INFORMATION
  Report Type: Spontaneous
  Country: US (occurrence: US)
  Receive Date: 20240404
  Receipt Date: 20240404
  Transmission Date: 20240715
  Serious: No
  Sender: FDA-Public Use
  Company Number: US-ABBVIE-5703342

PATIENT

DRUGS (1)
  1. LATISSE [Suspect]
     Active Substance: BIMATOPROST
     Indication: Product used for unknown indication
     Dosage: FREQUENCY TEXT: ONCE A YEAR
     Route: 047
     Dates: start: 2014

REACTIONS (2)
  - Product quality issue [Unknown]
  - Eye pruritus [Unknown]
